FAERS Safety Report 5080383-2 (Version None)
Quarter: 2006Q3

REPORT INFORMATION
  Report Type: 
  Country: None (occurrence: None)
  Receive Date: 20060815
  Receipt Date: 20060804
  Transmission Date: 20061208
  Serious: Yes (Other)
  Sender: FDA-Public Use
  Company Number: US-ROCHE-458398

PATIENT
  Age: 53 Year
  Sex: Male

DRUGS (4)
  1. PEGASYS [Suspect]
     Route: 058
     Dates: start: 20060721
  2. RIBAVIRIN [Suspect]
     Route: 048
     Dates: start: 20060721
  3. PEPTO BISMOL [Concomitant]
  4. UNSPECIFIED DRUG [Concomitant]
     Dosage: DRUG REPORTED AS ^FLU-LIKE SYMPTOMS^ STUFF.

REACTIONS (4)
  - BACK PAIN [None]
  - BLOOD URINE PRESENT [None]
  - HAEMATOCHEZIA [None]
  - NAUSEA [None]
